FAERS Safety Report 9336979 (Version 1)
Quarter: 2013Q2

REPORT INFORMATION
  Report Type: Spontaneous
  Country: FR (occurrence: FR)
  Receive Date: 20130607
  Receipt Date: 20130607
  Transmission Date: 20140414
  Serious: Yes (Hospitalization)
  Sender: FDA-Public Use
  Company Number: FR-BRISTOL-MYERS SQUIBB COMPANY-18970905

PATIENT
  Age: 80 Year
  Sex: Female

DRUGS (3)
  1. APROVEL TABS 75 MG [Suspect]
     Indication: HYPERTENSION
     Route: 048
  2. LAROXYL [Suspect]
     Indication: DEPRESSION
     Dosage: LAROXYL 40 MG/ML ORAL SOLUTION
     Route: 048
     Dates: end: 20130227
  3. SERESTA [Concomitant]
     Indication: DEPRESSION

REACTIONS (5)
  - Loss of consciousness [Recovered/Resolved]
  - Wound [Recovered/Resolved]
  - Fall [Recovered/Resolved]
  - Orthostatic hypotension [Recovered/Resolved]
  - Malaise [Recovered/Resolved]
